FAERS Safety Report 16984141 (Version 1)
Quarter: 2019Q4

REPORT INFORMATION
  Report Type: Spontaneous
  Country: US (occurrence: US)
  Receive Date: 20191101
  Receipt Date: 20191101
  Transmission Date: 20200122
  Serious: Yes (Hospitalization, Other)
  Sender: FDA-Public Use
  Company Number: US-AMNEAL PHARMACEUTICALS-2019-AMRX-02393

PATIENT
  Age: 44 Year
  Sex: Female

DRUGS (10)
  1. FERROUS SULFATE. [Concomitant]
     Active Substance: FERROUS SULFATE
     Indication: ANAEMIA
     Dosage: 325 MILLIGRAM, 2X/DAY
     Route: 048
     Dates: start: 20171110, end: 20180925
  2. ACTIVELLA [Suspect]
     Active Substance: ESTRADIOL\NORETHINDRONE ACETATE
     Indication: UTERINE LEIOMYOMA
     Dosage: 1 TABLETS, QD
     Route: 048
     Dates: start: 20171011, end: 20180405
  3. ELAGOLIX [Suspect]
     Active Substance: ELAGOLIX
     Indication: UTERINE LEIOMYOMA
     Dosage: 2 TABLETS, QD
     Route: 048
     Dates: start: 20171011, end: 20180405
  4. DICYCLOMINE HCL [Concomitant]
     Active Substance: DICYCLOMINE HYDROCHLORIDE
     Indication: IRRITABLE BOWEL SYNDROME
  5. DIETHYLPROPION [Concomitant]
     Active Substance: DIETHYLPROPION
     Indication: OBESITY
     Dosage: 25 MILLIGRAM, QD
     Route: 048
     Dates: start: 20170915
  6. FERROUS SULFATE. [Concomitant]
     Active Substance: FERROUS SULFATE
     Dosage: 325 MILLIGRAM, 3X/DAY
     Route: 048
     Dates: start: 20180925
  7. DOCUSATE SODIUM. [Concomitant]
     Active Substance: DOCUSATE SODIUM
     Indication: CONSTIPATION PROPHYLAXIS
     Dosage: 100 MILLIGRAM, AS NEEDED
     Route: 048
     Dates: start: 20171110
  8. MAGCAZIN D [Concomitant]
     Indication: SUPPLEMENTATION THERAPY
     Dosage: 1 TABLETS, 2X/DAY
     Route: 048
     Dates: start: 20170915
  9. DICYCLOMINE HCL [Concomitant]
     Active Substance: DICYCLOMINE HYDROCHLORIDE
     Indication: PROPHYLAXIS
     Dosage: 10 MILLIGRAM, 3X/DAY
     Route: 048
     Dates: start: 20170922
  10. PHENTERMINE. [Concomitant]
     Active Substance: PHENTERMINE
     Indication: WEIGHT DECREASED
     Dosage: 30 MILLIGRAM, QD
     Route: 048
     Dates: start: 20170915

REACTIONS (1)
  - Anaemia [Recovered/Resolved]

NARRATIVE: CASE EVENT DATE: 20190102
